FAERS Safety Report 9645638 (Version 1)
Quarter: 2013Q4

REPORT INFORMATION
  Report Type: Spontaneous
  Country: US (occurrence: None)
  Receive Date: 20131024
  Receipt Date: 20131024
  Transmission Date: 20140711
  Serious: Yes (Other)
  Sender: FDA-Public Use
  Company Number: None

PATIENT
  Sex: Female

DRUGS (3)
  1. REMBRANDT 2 HOUR WHITENING KIT [Suspect]
     Dosage: DENTAL
  2. REMBRANDT UNSPECIFIED (TOOTHPASTE) [Suspect]
     Dosage: DENTAL
  3. REMBRANDT [Suspect]
     Dosage: OROPHARYNGEAL

REACTIONS (9)
  - Pain [None]
  - Lip swelling [None]
  - Gingival swelling [None]
  - Pharyngeal oedema [None]
  - Dyspnoea [None]
  - Oral pain [None]
  - Burning sensation [None]
  - Gingival disorder [None]
  - Stomatitis [None]
